FAERS Safety Report 20705940 (Version 3)
Quarter: 2022Q2

REPORT INFORMATION
  Report Type: Report from Study
  Country: ZA (occurrence: ZA)
  Receive Date: 20220413
  Receipt Date: 20220519
  Transmission Date: 20220721
  Serious: Yes (Other)
  Sender: FDA-Public Use
  Company Number: ZA-NOVARTISPH-NVSC2022ZA079646

PATIENT
  Sex: Female

DRUGS (1)
  1. FINGOLIMOD HYDROCHLORIDE [Suspect]
     Active Substance: FINGOLIMOD HYDROCHLORIDE
     Indication: Relapsing-remitting multiple sclerosis
     Dosage: 0.5 MG, QD (ONCE DAILY)
     Route: 048
     Dates: start: 20161104

REACTIONS (8)
  - Blindness [Unknown]
  - Insomnia [Unknown]
  - Anxiety [Unknown]
  - Affect lability [Unknown]
  - Hyperaesthesia [Unknown]
  - Eye pain [Unknown]
  - Fundoscopy abnormal [Unknown]
  - Fatigue [Unknown]
